FAERS Safety Report 9266276 (Version 1)
Quarter: 2013Q2

REPORT INFORMATION
  Report Type: Spontaneous
  Country: HK (occurrence: HK)
  Receive Date: 20130502
  Receipt Date: 20130502
  Transmission Date: 20140414
  Serious: Yes (Hospitalization, Disabling)
  Sender: FDA-Public Use
  Company Number: HK-AMGEN-HKGSP2013030358

PATIENT
  Age: 88 Year
  Sex: Female

DRUGS (1)
  1. PROLIA [Suspect]
     Indication: PRODUCT USED FOR UNKNOWN INDICATION
     Dosage: UNK
     Route: 065
     Dates: start: 20120626

REACTIONS (3)
  - Gastrointestinal haemorrhage [Recovered/Resolved]
  - Blindness [Not Recovered/Not Resolved]
  - Immune system disorder [Unknown]
